FAERS Safety Report 9708735 (Version 1)
Quarter: 2013Q4

REPORT INFORMATION
  Report Type: Spontaneous
  Country: SA (occurrence: None)
  Receive Date: 20131122
  Receipt Date: 20131122
  Transmission Date: 20140711
  Serious: Yes (Hospitalization)
  Sender: FDA-Public Use
  Company Number: SA-AIKEM-000234

PATIENT
  Age: 19 Year
  Sex: Male

DRUGS (1)
  1. METFORMIN [Suspect]
     Indication: TYPE 2 DIABETES MELLITUS
     Dosage: 1.00-G-2.00 TIMES PER-1.00DAYS

REACTIONS (2)
  - Pancreatitis acute [None]
  - Dehydration [None]
